FAERS Safety Report 9705222 (Version 2)
Quarter: 2014Q1

REPORT INFORMATION
  Report Type: Spontaneous
  Country: US (occurrence: US)
  Receive Date: 20131122
  Receipt Date: 20140127
  Transmission Date: 20141002
  Serious: Yes (Other)
  Sender: FDA-Public Use
  Company Number: US-BAYER-2013-141104

PATIENT
  Age: 26 Year
  Sex: Female

DRUGS (1)
  1. MIRENA [Suspect]
     Dosage: 20 MCG/24HR, CONT
     Route: 015
     Dates: start: 20070216, end: 20111107

REACTIONS (8)
  - Device dislocation [None]
  - Genital haemorrhage [None]
  - Injury [None]
  - Pain [None]
  - Psychogenic pain disorder [None]
  - Anhedonia [None]
  - Emotional distress [None]
  - Device issue [None]
